FAERS Safety Report 23296235 (Version 1)
Quarter: 2023Q4

REPORT INFORMATION
  Report Type: Spontaneous
  Country: AR (occurrence: AR)
  Receive Date: 20231214
  Receipt Date: 20231214
  Transmission Date: 20240109
  Serious: Yes (Other)
  Sender: FDA-Public Use
  Company Number: AR-PFIZER INC-PV202300200421

PATIENT
  Age: 44 Year
  Sex: Male

DRUGS (2)
  1. SOMAVERT [Suspect]
     Active Substance: PEGVISOMANT
     Indication: Acromegaly
     Dosage: 15 MG, 7X/WEEK
     Dates: start: 20120102
  2. SIGNIFOR LAR [Concomitant]
     Active Substance: PASIREOTIDE PAMOATE

REACTIONS (1)
  - Pituitary tumour [Not Recovered/Not Resolved]
